FAERS Safety Report 7262733-1 (Version None)
Quarter: 2011Q1

REPORT INFORMATION
  Report Type: 
  Country: None (occurrence: None)
  Receive Date: 20110130
  Receipt Date: 20100909
  Transmission Date: 20110831
  Serious: No
  Sender: FDA-Public Use
  Company Number: US-ABBOTT-10P-163-0670626-00

PATIENT
  Sex: Male
  Weight: 66.738 kg

DRUGS (8)
  1. QUINAPRIL [Concomitant]
     Indication: PRODUCT USED FOR UNKNOWN INDICATION
  2. LOTION [Concomitant]
     Indication: SKIN DISORDER
  3. PYROICAM [Concomitant]
     Indication: PRODUCT USED FOR UNKNOWN INDICATION
  4. VITAMIN D [Concomitant]
     Indication: PRODUCT USED FOR UNKNOWN INDICATION
  5. HUMIRA [Suspect]
     Indication: RHEUMATOID ARTHRITIS
     Dates: start: 20080101, end: 20100701
  6. VIAGRA [Concomitant]
     Indication: PRODUCT USED FOR UNKNOWN INDICATION
  7. HUMIRA [Suspect]
     Indication: ANKYLOSING SPONDYLITIS
  8. DILTIAZEM [Concomitant]
     Indication: PRODUCT USED FOR UNKNOWN INDICATION

REACTIONS (5)
  - IRRITABILITY [None]
  - BURNING SENSATION [None]
  - PARAESTHESIA [None]
  - ARTHRALGIA [None]
  - MUSCULAR WEAKNESS [None]
